FAERS Safety Report 12706057 (Version 2)
Quarter: 2016Q3

REPORT INFORMATION
  Report Type: Spontaneous
  Country: US (occurrence: US)
  Receive Date: 20160901
  Receipt Date: 20160901
  Transmission Date: 20161109
  Serious: No
  Sender: FDA-Public Use
  Company Number: US-JAZZ-2016-US-007905

PATIENT

DRUGS (25)
  1. XYREM [Suspect]
     Active Substance: SODIUM OXYBATE
     Indication: CATAPLEXY
     Dosage: 3 G, BID
     Route: 048
     Dates: start: 201310, end: 201312
  2. ALVESCO [Concomitant]
     Active Substance: CICLESONIDE
  3. FEXOFENADINE HCL [Concomitant]
     Active Substance: FEXOFENADINE HYDROCHLORIDE
  4. TRIAMCINOLONE [Concomitant]
     Active Substance: TRIAMCINOLONE
  5. NUVIGIL [Concomitant]
     Active Substance: ARMODAFINIL
  6. AZELASTINE [Concomitant]
     Active Substance: AZELASTINE
  7. HYDROCODONE/ACETAMINOPHEN [Concomitant]
     Active Substance: ACETAMINOPHEN\HYDROCODONE
  8. CLOBETASOL [Concomitant]
     Active Substance: CLOBETASOL
  9. EPIPEN [Concomitant]
     Active Substance: EPINEPHRINE
  10. ARMOUR THYROID [Concomitant]
     Active Substance: THYROID, PORCINE
  11. IRON [Concomitant]
     Active Substance: IRON
  12. NYSTATIN. [Concomitant]
     Active Substance: NYSTATIN
  13. POLYSACCHARIDE IRON [Concomitant]
  14. FLONASE [Concomitant]
     Active Substance: FLUTICASONE PROPIONATE
  15. MULTIVITAMINS [Concomitant]
     Active Substance: VITAMINS
  16. THYROID [Concomitant]
     Active Substance: LEVOTHYROXINE\LIOTHYRONINE
  17. PROAIR HFA [Concomitant]
     Active Substance: ALBUTEROL SULFATE
  18. DIPHENHYDRAMINE. [Concomitant]
     Active Substance: DIPHENHYDRAMINE
  19. MONTELUKAST SODIUM. [Concomitant]
     Active Substance: MONTELUKAST SODIUM
  20. XYREM [Suspect]
     Active Substance: SODIUM OXYBATE
     Indication: NARCOLEPSY
     Dosage: 2.25 G, BID
     Route: 048
     Dates: start: 201309, end: 201310
  21. XYREM [Suspect]
     Active Substance: SODIUM OXYBATE
     Dosage: 3.75 G, BID
     Route: 048
     Dates: start: 201312
  22. CETIRIZINE HCL [Concomitant]
     Active Substance: CETIRIZINE HYDROCHLORIDE
  23. PHENYTOIN SODIUM. [Concomitant]
     Active Substance: PHENYTOIN SODIUM
  24. FISH OIL [Concomitant]
     Active Substance: FISH OIL
  25. MINOCYCLINE HCL [Concomitant]
     Active Substance: MINOCYCLINE HYDROCHLORIDE

REACTIONS (2)
  - Stress [Not Recovered/Not Resolved]
  - Cataplexy [Not Recovered/Not Resolved]
